FAERS Safety Report 6082644-7 (Version None)
Quarter: 2009Q1

REPORT INFORMATION
  Report Type: 
  Country: None (occurrence: None)
  Receive Date: 20090218
  Receipt Date: 20090121
  Transmission Date: 20090719
  Serious: Yes (Other)
  Sender: FDA-Public Use
  Company Number: US-PFIZER INC-2009159613

PATIENT
  Sex: Male

DRUGS (1)
  1. XALATAN [Suspect]
     Dosage: UNK

REACTIONS (3)
  - DRY EYE [None]
  - INTRAOCULAR PRESSURE TEST ABNORMAL [None]
  - SURGERY [None]
